FAERS Safety Report 6427799-7 (Version None)
Quarter: 2009Q4

REPORT INFORMATION
  Report Type: 
  Country: None (occurrence: None)
  Receive Date: 20091104
  Receipt Date: 20091104
  Transmission Date: 20100525
  Serious: Yes (Life-Threatening)
  Sender: FDA-Public Use
  Company Number: None

PATIENT
  Age: 22 Year
  Sex: Female
  Weight: 47.6277 kg

DRUGS (1)
  1. CHLOROQUINE PHOSPHATE [Suspect]
     Indication: MALARIA PROPHYLAXIS
     Dosage: 1 TABLET
     Route: 048
     Dates: start: 20090527, end: 20090608

REACTIONS (4)
  - ALOPECIA [None]
  - LIP SWELLING [None]
  - RASH GENERALISED [None]
  - SKIN EXFOLIATION [None]
